FAERS Safety Report 10645380 (Version 10)
Quarter: 2016Q3

REPORT INFORMATION
  Report Type: Report from Study
  Country: CA (occurrence: CA)
  Receive Date: 20141211
  Receipt Date: 20160812
  Transmission Date: 20161109
  Serious: Yes (Hospitalization, Other)
  Sender: FDA-Public Use
  Company Number: PHHY2013CA130630

PATIENT
  Age: 56 Year
  Sex: Female

DRUGS (2)
  1. SANDOSTATIN [Suspect]
     Active Substance: OCTREOTIDE ACETATE
     Indication: OVARIAN CANCER METASTATIC
     Dosage: 150 UG, BID
     Route: 058
     Dates: start: 20130915
  2. SANDOSTATIN LAR DEPOT [Suspect]
     Active Substance: OCTREOTIDE ACETATE
     Indication: OVARIAN CANCER METASTATIC
     Dosage: 30 MG, QMO (EVERY FOUR WEEKS)
     Route: 030
     Dates: start: 20131016

REACTIONS (16)
  - Intestinal obstruction [Unknown]
  - Fatigue [Unknown]
  - Limb injury [Unknown]
  - Blood creatinine increased [Not Recovered/Not Resolved]
  - Vomiting [Unknown]
  - Wound [Recovered/Resolved]
  - Injection site pain [Recovered/Resolved]
  - Product use issue [Unknown]
  - Pyrexia [Unknown]
  - Cellulitis [Unknown]
  - Blood pressure increased [Unknown]
  - Infection [Unknown]
  - Weight decreased [Unknown]
  - Oedema peripheral [Unknown]
  - Abdominal pain [Unknown]
  - Blood pressure systolic increased [Unknown]

NARRATIVE: CASE EVENT DATE: 20130915
